FAERS Safety Report 22586140 (Version 2)
Quarter: 2024Q3

REPORT INFORMATION
  Report Type: Report from Study
  Country: RU (occurrence: RU)
  Receive Date: 20230610
  Receipt Date: 20240904
  Transmission Date: 20241017
  Serious: Yes (Other)
  Sender: RANBAXY
  Company Number: RU-SUN PHARMACEUTICAL INDUSTRIES LTD-2023R1-393966

PATIENT
  Age: 8 Year
  Sex: Female

DRUGS (2)
  1. TOFACITINIB [Suspect]
     Active Substance: TOFACITINIB
     Indication: Polyarthritis
     Dosage: UNK (0.5 MG/KG)
     Route: 065
  2. METHOTREXATE [Suspect]
     Active Substance: METHOTREXATE
     Indication: Polyarthritis
     Dosage: UNK
     Route: 065

REACTIONS (1)
  - Therapeutic response decreased [Unknown]
